FAERS Safety Report 22129176 (Version 1)
Quarter: 2023Q1

REPORT INFORMATION
  Report Type: Other
  Country: PT (occurrence: PT)
  Receive Date: 20230323
  Receipt Date: 20230323
  Transmission Date: 20230417
  Serious: Yes (Other)
  Sender: FDA-Public Use
  Company Number: PT-CELLTRION INC.-2023PT005881

PATIENT

DRUGS (15)
  1. RITUXIMAB [Suspect]
     Active Substance: RITUXIMAB
     Indication: Non-Hodgkin^s lymphoma
     Dosage: UNK
     Dates: start: 202204, end: 202209
  2. RITUXIMAB [Suspect]
     Active Substance: RITUXIMAB
     Dosage: UNK
     Dates: start: 202210, end: 202211
  3. RITUXIMAB [Suspect]
     Active Substance: RITUXIMAB
     Dosage: UNK
     Dates: start: 202301
  4. RITUXIMAB [Suspect]
     Active Substance: RITUXIMAB
     Dosage: UNK
     Dates: start: 202302
  5. CYCLOPHOSPHAMIDE [Suspect]
     Active Substance: CYCLOPHOSPHAMIDE
     Indication: Non-Hodgkin^s lymphoma
     Dosage: UNK
     Dates: start: 202204, end: 202209
  6. GEMCITABINE [Suspect]
     Active Substance: GEMCITABINE
     Indication: Non-Hodgkin^s lymphoma
     Dosage: UNK
     Dates: start: 202302
  7. POLATUZUMAB VEDOTIN [Suspect]
     Active Substance: POLATUZUMAB VEDOTIN
     Indication: Non-Hodgkin^s lymphoma
     Dosage: UNK
     Dates: start: 202301
  8. POLATUZUMAB VEDOTIN [Suspect]
     Active Substance: POLATUZUMAB VEDOTIN
     Dosage: UNK
     Dates: start: 202302
  9. VINCRISTINE [Suspect]
     Active Substance: VINCRISTINE
     Indication: Non-Hodgkin^s lymphoma
     Dosage: UNK
     Dates: start: 202204, end: 202209
  10. DOXORUBICIN HYDROCHLORIDE [Suspect]
     Active Substance: DOXORUBICIN HYDROCHLORIDE
     Indication: Non-Hodgkin^s lymphoma
     Dosage: UNK
     Dates: start: 202204, end: 202209
  11. ETOPOSIDE [Suspect]
     Active Substance: ETOPOSIDE
     Indication: Non-Hodgkin^s lymphoma
     Dosage: UNK
     Dates: start: 202210, end: 202211
  12. PREDNISONE [Suspect]
     Active Substance: PREDNISONE
     Indication: Non-Hodgkin^s lymphoma
     Dosage: UNK
     Dates: start: 202204, end: 202209
  13. IFOSFAMIDE [Suspect]
     Active Substance: IFOSFAMIDE
     Indication: Non-Hodgkin^s lymphoma
     Dosage: UNK
     Dates: start: 202210, end: 202211
  14. CARBOPLATIN [Suspect]
     Active Substance: CARBOPLATIN
     Indication: Non-Hodgkin^s lymphoma
     Dosage: UNK
     Dates: start: 202210, end: 202211
  15. OXALIPLATIN [Suspect]
     Active Substance: OXALIPLATIN
     Indication: Non-Hodgkin^s lymphoma
     Dosage: UNK
     Dates: start: 202302

REACTIONS (1)
  - Disease progression [Unknown]
